FAERS Safety Report 17979256 (Version 2)
Quarter: 2022Q3

REPORT INFORMATION
  Report Type: Report from Study
  Country: CA (occurrence: CA)
  Receive Date: 20200703
  Receipt Date: 20220711
  Transmission Date: 20221027
  Serious: Yes (Hospitalization)
  Sender: FDA-Public Use
  Company Number: CA-GLAXOSMITHKLINE-CA2020AMR114411

PATIENT

DRUGS (10)
  1. MEPOLIZUMAB [Suspect]
     Active Substance: MEPOLIZUMAB
     Indication: Asthma
     Dosage: 100 MG, Z, MONTHLY
     Dates: start: 20180326
  2. ALBUTEROL [Suspect]
     Active Substance: ALBUTEROL
     Indication: Product used for unknown indication
     Dosage: 2 DF (NEBULES), QID, 4 TIMES DAILY AND EVERY HOUR IN BETWEEN PRN
  3. ALBUTEROL [Suspect]
     Active Substance: ALBUTEROL
     Indication: Product used for unknown indication
     Dosage: 2 PUFF(S), QD EVERY HOUR DAILY PRN
     Route: 055
  4. THEOPHYLLINE [Suspect]
     Active Substance: THEOPHYLLINE
     Indication: Product used for unknown indication
     Dosage: 2 DF(TABLETS), QD, 400
  5. INCRUSE ELLIPTA [Suspect]
     Active Substance: UMECLIDINIUM BROMIDE
     Indication: Product used for unknown indication
     Dosage: 1 PUFF(S), QD
     Route: 055
  6. BREO ELLIPTA [Suspect]
     Active Substance: FLUTICASONE FUROATE\VILANTEROL TRIFENATATE
     Indication: Product used for unknown indication
     Dosage: 1 PUFF(S), QD
     Route: 055
  7. BECLOMETHASONE [Suspect]
     Active Substance: BECLOMETHASONE
     Indication: Product used for unknown indication
     Dosage: 2 DF (SPRAYS) IN EACH NOSTRIL, QD
  8. CETIRIZINE HYDROCHLORIDE [Suspect]
     Active Substance: CETIRIZINE HYDROCHLORIDE
     Indication: Product used for unknown indication
     Dosage: 1 DF (TABLET), QD, 20 MG
  9. IPRATROPIUM [Suspect]
     Active Substance: IPRATROPIUM
     Indication: Product used for unknown indication
     Dosage: 1 DF(NEBULE), QID, 4 TIMES DAILY AND EVERY HOUR IN BETWEEN PRN
  10. ATROVENT [Suspect]
     Active Substance: IPRATROPIUM BROMIDE
     Indication: Product used for unknown indication
     Dosage: 2 PUFF(S), BID
     Route: 055

REACTIONS (2)
  - Hospitalisation [Unknown]
  - Asthma [Unknown]
